FAERS Safety Report 8024681-9 (Version None)
Quarter: 2012Q1

REPORT INFORMATION
  Report Type: 
  Country: None (occurrence: None)
  Receive Date: 20120105
  Receipt Date: 20111222
  Transmission Date: 20120608
  Serious: Yes (Hospitalization)
  Sender: FDA-Public Use
  Company Number: US-UCBSA-048369

PATIENT
  Age: 15 Year
  Sex: Female
  Weight: 41.8 kg

DRUGS (6)
  1. CERTOLIZUMAB PEGOL [Suspect]
     Indication: CROHN'S DISEASE
     Dosage: CIMZIA
     Route: 058
     Dates: start: 20111024, end: 20111215
  2. CERTOLIZUMAB PEGOL [Suspect]
     Dosage: NUMBER OF DOSES RECEIVED: 9
     Route: 058
     Dates: start: 20110131, end: 20110912
  3. CERTOLIZUMAB PEGOL [Suspect]
     Dosage: NUMBER OF DOSES RECEIVED: 2
     Route: 058
     Dates: start: 20101206, end: 20110103
  4. BUDESONIDE [Concomitant]
     Indication: CROHN'S DISEASE
     Route: 048
     Dates: start: 20111214, end: 20111219
  5. CERTOLIZUMAB PEGOL [Suspect]
     Dosage: NUMBER OF DOSES RECEIVED: 3
     Route: 058
     Dates: start: 20101011, end: 20101108
  6. PREDNISONE TAB [Concomitant]
     Indication: CROHN'S DISEASE
     Route: 048
     Dates: start: 20111220

REACTIONS (1)
  - ABDOMINAL ABSCESS [None]
